FAERS Safety Report 7113372-4 (Version None)
Quarter: 2010Q4

REPORT INFORMATION
  Report Type: 
  Country: None (occurrence: None)
  Receive Date: 20101119
  Receipt Date: 20101115
  Transmission Date: 20110411
  Serious: Yes (Hospitalization, Other)
  Sender: FDA-Public Use
  Company Number: GB-PFIZER INC-2010148912

PATIENT
  Age: 74 Year
  Sex: Male

DRUGS (1)
  1. ARTHROTEC [Suspect]
     Dosage: UNK

REACTIONS (2)
  - HIP ARTHROPLASTY [None]
  - MOBILITY DECREASED [None]
